FAERS Safety Report 8914826 (Version 4)
Quarter: 2013Q1

REPORT INFORMATION
  Report Type: Report from Study
  Country: IT (occurrence: IT)
  Receive Date: 20121119
  Receipt Date: 20130220
  Transmission Date: 20140127
  Serious: Yes (Life-Threatening, Hospitalization)
  Sender: FDA-Public Use
  Company Number: IT-ROCHE-1156117

PATIENT
  Age: 53 Year
  Sex: Male

DRUGS (6)
  1. AVASTIN [Suspect]
     Indication: COLON CANCER
     Route: 042
     Dates: start: 20120314, end: 20121031
  2. IRINOTECAN [Concomitant]
     Indication: COLON CANCER
     Route: 042
     Dates: start: 20120314, end: 20121031
  3. CALCIUM LEVOFOLINATE [Concomitant]
     Indication: COLON CANCER
     Route: 041
     Dates: start: 20120314, end: 20121003
  4. FLUOROURACILE TEVA [Concomitant]
     Indication: COLON CANCER
     Route: 042
     Dates: start: 20120314, end: 20121003
  5. FLUOROURACILE TEVA [Concomitant]
     Route: 040
     Dates: start: 20120314, end: 20121003
  6. FLUOROURACILE TEVA [Concomitant]
     Route: 041
     Dates: start: 20120314, end: 20121003

REACTIONS (2)
  - Electrocardiogram ST-T segment elevation [Recovered/Resolved]
  - Angina unstable [Recovered/Resolved]
